FAERS Safety Report 10410707 (Version 1)
Quarter: 2014Q2

REPORT INFORMATION
  Report Type: Spontaneous
  Country: US (occurrence: None)
  Receive Date: 20140604
  Receipt Date: 20140604
  Transmission Date: 20141212
  Serious: Yes (Hospitalization)
  Sender: FDA-Public Use
  Company Number: 20090901CINRY1114

PATIENT
  Age: 4 Year
  Sex: Male

DRUGS (2)
  1. CINRYZE [Suspect]
     Indication: HEREDITARY ANGIOEDEMA
     Dosage: 2 IN 1 WK
     Dates: end: 20080731
  2. CINRYZE [Suspect]
     Indication: PROPHYLAXIS
     Dosage: 2 IN 1 WK
     Dates: end: 20080731

REACTIONS (2)
  - Hereditary angioedema [None]
  - Off label use [None]
